FAERS Safety Report 5851379-5 (Version None)
Quarter: 2008Q3

REPORT INFORMATION
  Report Type: 
  Country: None (occurrence: None)
  Receive Date: 20080731
  Receipt Date: 20080414
  Transmission Date: 20090109
  Serious: No
  Sender: FDA-Public Use
  Company Number: US200804003917

PATIENT
  Age: 43 Year
  Sex: Male

DRUGS (3)
  1. BYETTA [Suspect]
     Dosage: 5 UG, SUBCUTANEOUS : 10 UG, SUBCUTANEOUS : 5 UG, SUBCUTANEOUS
     Route: 058
     Dates: start: 20070101, end: 20070901
  2. BYETTA [Suspect]
     Dosage: 5 UG, SUBCUTANEOUS : 10 UG, SUBCUTANEOUS : 5 UG, SUBCUTANEOUS
     Route: 058
     Dates: start: 20070901, end: 20071001
  3. BYETTA [Suspect]
     Dosage: 5 UG, SUBCUTANEOUS : 10 UG, SUBCUTANEOUS : 5 UG, SUBCUTANEOUS
     Route: 058
     Dates: start: 20071001

REACTIONS (3)
  - BLOOD GLUCOSE DECREASED [None]
  - FEELING JITTERY [None]
  - MALAISE [None]
